FAERS Safety Report 6746043-4 (Version None)
Quarter: 2010Q2

REPORT INFORMATION
  Report Type: 
  Country: None (occurrence: None)
  Receive Date: 20100528
  Receipt Date: 20100514
  Transmission Date: 20101027
  Serious: Yes (Other)
  Sender: FDA-Public Use
  Company Number: US-ELI_LILLY_AND_COMPANY-US201005004866

PATIENT
  Age: 61 Year
  Sex: Female

DRUGS (2)
  1. EFFIENT [Suspect]
     Dosage: 10 MG, UNKNOWN
     Dates: start: 20100503
  2. PROTONIX [Concomitant]
     Indication: GASTROINTESTINAL DISORDER

REACTIONS (1)
  - DEVICE OCCLUSION [None]
